FAERS Safety Report 15427249 (Version 2)
Quarter: 2024Q4

REPORT INFORMATION
  Report Type: Spontaneous
  Country: JP (occurrence: JP)
  Receive Date: 20180925
  Receipt Date: 20241021
  Transmission Date: 20250115
  Serious: Yes (Life-Threatening, Other)
  Sender: NOVARTIS
  Company Number: PHJP2015JP020385

PATIENT
  Age: 72 Year
  Sex: Female

DRUGS (13)
  1. NEORAL [Suspect]
     Active Substance: CYCLOSPORINE
     Indication: Psoriasis
     Dosage: 150 MG, QD
     Route: 048
     Dates: start: 20121220
  2. NEORAL [Suspect]
     Active Substance: CYCLOSPORINE
     Indication: Psoriatic arthropathy
     Dosage: 200 MG, QD
     Route: 048
     Dates: start: 20130117, end: 201309
  3. METHOTREXATE [Suspect]
     Active Substance: METHOTREXATE
     Indication: Psoriasis
     Dosage: 12 MG, QW
     Route: 065
  4. METHOTREXATE [Suspect]
     Active Substance: METHOTREXATE
     Indication: Psoriatic arthropathy
     Dosage: 8 MG, QW (8 MG/WEEK)
     Route: 065
  5. METHOTREXATE [Suspect]
     Active Substance: METHOTREXATE
     Dosage: QW (6-12 MG/WEEK)
     Route: 065
  6. ADALIMUMAB [Suspect]
     Active Substance: ADALIMUMAB
     Indication: Psoriasis
     Dosage: UNK, Q2W (40-80 MG, Q2W)
     Route: 065
  7. ADALIMUMAB [Suspect]
     Active Substance: ADALIMUMAB
     Indication: Psoriatic arthropathy
  8. CYCLOSPORINE [Suspect]
     Active Substance: CYCLOSPORINE
     Indication: Psoriatic arthropathy
     Dosage: QD (150-200 MG/DAY)
     Route: 065
  9. CYCLOSPORINE [Suspect]
     Active Substance: CYCLOSPORINE
     Indication: Psoriasis
  10. USTEKINUMAB [Suspect]
     Active Substance: USTEKINUMAB
     Indication: Psoriatic arthropathy
     Dosage: 45 MG, Q3MO (45 MG, Q3MO)
     Route: 065
  11. USTEKINUMAB [Suspect]
     Active Substance: USTEKINUMAB
     Indication: Psoriasis
  12. ETRETINATE [Suspect]
     Active Substance: ETRETINATE
     Indication: Psoriasis
     Dosage: UNK
     Route: 065
  13. ETRETINATE [Suspect]
     Active Substance: ETRETINATE
     Indication: Psoriatic arthropathy

REACTIONS (3)
  - Breast cancer [Recovered/Resolved]
  - Blood creatinine increased [Unknown]
  - Product use in unapproved indication [Unknown]

NARRATIVE: CASE EVENT DATE: 20140212
